FAERS Safety Report 11203721 (Version 5)
Quarter: 2017Q3

REPORT INFORMATION
  Report Type: Report from Study
  Country: None (occurrence: DE)
  Receive Date: 20150619
  Receipt Date: 20170804
  Transmission Date: 20171127
  Serious: Yes (Hospitalization, Other)
  Sender: FDA-Public Use
  Company Number: DE-ABBVIE-15P-062-1409856-00

PATIENT
  Age: 82 Year
  Sex: Male

DRUGS (8)
  1. NACOM RETARD [Concomitant]
     Indication: PRODUCT USED FOR UNKNOWN INDICATION
     Dosage: NOCTE
  2. DOXEPINE DROPS [Concomitant]
     Indication: RESTLESSNESS
     Dosage: AS NEEDED (MOSTLY 13:00-14:00)
  3. DUODOPA [Suspect]
     Active Substance: CARBIDOPA\LEVODOPA
     Indication: PARKINSON^S DISEASE
     Dosage: MD 7.7ML, CRD 2.8ML/H, ED 1.5ML
     Route: 050
     Dates: start: 20070626
  4. OMEP [Concomitant]
     Active Substance: OMEPRAZOLE
     Indication: PRODUCT USED FOR UNKNOWN INDICATION
  5. MADOPAR [Concomitant]
     Active Substance: BENSERAZIDE HYDROCHLORIDE\LEVODOPA
     Indication: PARKINSON^S DISEASE
     Route: 048
     Dates: start: 201707
  6. ZOPICLON [Concomitant]
     Active Substance: ZOPICLONE
     Indication: SLEEP DISORDER
     Dosage: 3,75, EVENINGS
  7. DUODOPA [Suspect]
     Active Substance: CARBIDOPA\LEVODOPA
     Route: 050
     Dates: end: 201707
  8. DUODOPA [Suspect]
     Active Substance: CARBIDOPA\LEVODOPA
     Route: 050

REACTIONS (11)
  - Sepsis [Not Recovered/Not Resolved]
  - Urinary tract infection [Not Recovered/Not Resolved]
  - Hyperkinesia [Not Recovered/Not Resolved]
  - Urinary tract infection [Recovered/Resolved]
  - Hyperhidrosis [Unknown]
  - Bacterial test positive [Not Recovered/Not Resolved]
  - Complication associated with device [Not Recovered/Not Resolved]
  - Vomiting [Recovered/Resolved]
  - Klebsiella infection [Unknown]
  - Tremor [Unknown]
  - Enterococcal infection [Unknown]

NARRATIVE: CASE EVENT DATE: 2015
